FAERS Safety Report 4323048-4 (Version None)
Quarter: 2004Q1

REPORT INFORMATION
  Report Type: 
  Country: None (occurrence: None)
  Receive Date: 20040325
  Receipt Date: 20040318
  Transmission Date: 20041129
  Serious: Yes (Other)
  Sender: FDA-Public Use
  Company Number: 200413340GDDC

PATIENT
  Age: 57 Year
  Sex: Male

DRUGS (4)
  1. ARAVA [Suspect]
     Indication: RHEUMATOID ARTHRITIS
     Dosage: DOSE: UNK
  2. PREDNISONE [Concomitant]
     Indication: RHEUMATOID ARTHRITIS
     Route: 048
  3. ARTHROTEC [Concomitant]
     Indication: GASTROINTESTINAL DISORDER
  4. ARTHROTEC [Concomitant]
     Indication: PROPHYLAXIS

REACTIONS (2)
  - MACULAR OEDEMA [None]
  - VISION BLURRED [None]
